FAERS Safety Report 20552804 (Version 1)
Quarter: 2022Q1

REPORT INFORMATION
  Report Type: Spontaneous
  Country: US (occurrence: None)
  Receive Date: 20220303
  Receipt Date: 20220303
  Transmission Date: 20220423
  Serious: Yes (Disabling, Other)
  Sender: FDA-Public Use
  Company Number: None

PATIENT
  Age: 37 Year
  Sex: Female
  Weight: 42.75 kg

DRUGS (12)
  1. BENTYL [Suspect]
     Active Substance: DICYCLOMINE HYDROCHLORIDE
     Indication: Crohn^s disease
     Dosage: FREQUENCY : TWICE A DAY;?
     Route: 048
  2. BENTYL [Suspect]
     Active Substance: DICYCLOMINE HYDROCHLORIDE
     Indication: Inflammatory bowel disease
  3. ESTRADIOL [Concomitant]
     Active Substance: ESTRADIOL
  4. LAMICTAL [Concomitant]
     Active Substance: LAMOTRIGINE
  5. XANAX [Concomitant]
     Active Substance: ALPRAZOLAM
  6. VISTARIL [Concomitant]
     Active Substance: HYDROXYZINE PAMOATE
  7. PREDNISONE [Concomitant]
     Active Substance: PREDNISONE
  8. ESTROGEN CREAM [Concomitant]
  9. CYMBALTA [Concomitant]
     Active Substance: DULOXETINE HYDROCHLORIDE
  10. ENTYVIO [Concomitant]
     Active Substance: VEDOLIZUMAB
  11. VITAMIN D LIQUIS SUPPLEMENT [Concomitant]
  12. ENSURE PLUS PROTEIN DRINKS [Concomitant]

REACTIONS (8)
  - Mental impairment [None]
  - Cognitive disorder [None]
  - Memory impairment [None]
  - Aphasia [None]
  - Frustration tolerance decreased [None]
  - Slow speech [None]
  - Loss of employment [None]
  - Language disorder [None]

NARRATIVE: CASE EVENT DATE: 20170202
